FAERS Safety Report 8481172-9 (Version None)
Quarter: 2012Q3

REPORT INFORMATION
  Report Type: 
  Country: None (occurrence: None)
  Receive Date: 20120702
  Receipt Date: 20120627
  Transmission Date: 20120928
  Serious: Yes (Other)
  Sender: FDA-Public Use
  Company Number: PHHY2012AR055787

PATIENT
  Sex: Female

DRUGS (3)
  1. DIOVAN [Suspect]
     Dosage: 320 MG, UNK
  2. EXFORGE [Suspect]
     Dosage: 160/5 MG, UNK
  3. METFORMIN HCL [Suspect]
     Dosage: UNK

REACTIONS (6)
  - GENERAL PHYSICAL HEALTH DETERIORATION [None]
  - ARTHRITIS [None]
  - OSTEOPOROSIS [None]
  - VERTEBRAL WEDGING [None]
  - PAIN [None]
  - SPINAL DISORDER [None]
